FAERS Safety Report 5248967-6 (Version None)
Quarter: 2007Q1

REPORT INFORMATION
  Report Type: 
  Country: None (occurrence: None)
  Receive Date: 20070228
  Receipt Date: 20060418
  Transmission Date: 20070707
  Serious: No
  Sender: FDA-Public Use
  Company Number: US-GLAXOSMITHKLINE-A0602148A

PATIENT
  Sex: Female

DRUGS (1)
  1. VALTREX [Suspect]
     Dosage: 1G TWICE PER DAY
     Route: 048

REACTIONS (3)
  - HEADACHE [None]
  - NAUSEA [None]
  - POOR QUALITY SLEEP [None]
